FAERS Safety Report 17298708 (Version 1)
Quarter: 2020Q1

REPORT INFORMATION
  Report Type: Spontaneous
  Country: BR (occurrence: BR)
  Receive Date: 20200122
  Receipt Date: 20200122
  Transmission Date: 20200409
  Serious: Yes (Other)
  Sender: FDA-Public Use
  Company Number: NVSC2020BR012184

PATIENT
  Sex: Male
  Weight: 93 kg

DRUGS (3)
  1. OLMESARTAN [Concomitant]
     Active Substance: OLMESARTAN
     Indication: HYPERTENSION
     Dosage: 2 DF, QD (01 YEAR AGO)
     Route: 048
  2. CHLORTALIDONE [Concomitant]
     Active Substance: CHLORTHALIDONE
     Indication: HYPERTENSION
     Dosage: 1 DF, QD (15 YEARS AGO)
     Route: 048
  3. ATENOLOL. [Suspect]
     Active Substance: ATENOLOL
     Indication: HYPERTENSION
     Dosage: 2 DF, QD (15 YEARS AGO)
     Route: 048

REACTIONS (3)
  - Cataract [Not Recovered/Not Resolved]
  - Amnesia [Not Recovered/Not Resolved]
  - Intraocular pressure increased [Unknown]
